FAERS Safety Report 4530817-4 (Version None)
Quarter: 2004Q4

REPORT INFORMATION
  Report Type: 
  Country: None (occurrence: None)
  Receive Date: 20041216
  Receipt Date: 20041130
  Transmission Date: 20050328
  Serious: Yes (Other)
  Sender: FDA-Public Use
  Company Number: PHBS2004BE16291

PATIENT
  Age: 39 Year
  Sex: Female

DRUGS (4)
  1. VISUDYNE [Suspect]
     Indication: CHOROIDAL NEOVASCULARISATION
  2. PROPRANOLOL [Concomitant]
  3. PRAZEPAM [Concomitant]
  4. CONTRACEPTIVES [Concomitant]

REACTIONS (3)
  - CHOROIDAL NEOVASCULARISATION [None]
  - DISEASE RECURRENCE [None]
  - RETINAL PIGMENT EPITHELIOPATHY [None]
